FAERS Safety Report 13541914 (Version 2)
Quarter: 2017Q2

REPORT INFORMATION
  Report Type: Spontaneous
  Country: NL (occurrence: NL)
  Receive Date: 20170512
  Receipt Date: 20170601
  Transmission Date: 20170830
  Serious: Yes (Death, Hospitalization, Other)
  Sender: FDA-Public Use
  Company Number: NL-BRISTOL-MYERS SQUIBB COMPANY-BMS-2017-038878

PATIENT
  Age: 69 Year
  Sex: Male
  Weight: 90 kg

DRUGS (16)
  1. THEOLAIR [Concomitant]
     Active Substance: THEOPHYLLINE ANHYDROUS
     Indication: PRODUCT USED FOR UNKNOWN INDICATION
     Dosage: 3DD1
     Route: 048
  2. ACTONEL WEKELIJKS TABLET FILMOMHULD 35MG [Concomitant]
     Indication: PRODUCT USED FOR UNKNOWN INDICATION
     Dosage: 1XPER WEEK 1
     Route: 048
  3. PREDNISOLON [Concomitant]
     Active Substance: PREDNISOLONE
     Indication: PRODUCT USED FOR UNKNOWN INDICATION
     Dosage: 3DD5MG
     Route: 048
  4. HYDROCHLOORTHIAZIDE, LOSARTAN [Concomitant]
     Indication: PRODUCT USED FOR UNKNOWN INDICATION
     Dosage: 1DD1
     Route: 048
  5. ACTONEL [Concomitant]
     Active Substance: RISEDRONATE SODIUM
     Indication: PRODUCT USED FOR UNKNOWN INDICATION
     Dosage: 1XPER WEEK 1
     Route: 048
  6. INDOMETACINE [Concomitant]
     Active Substance: INDOMETHACIN
     Indication: PRODUCT USED FOR UNKNOWN INDICATION
     Dosage: 2DD50MG
     Route: 048
  7. INDOMETACINE CAPSULE 50MG [Concomitant]
     Indication: PRODUCT USED FOR UNKNOWN INDICATION
     Dosage: 2DD50MG
     Route: 048
  8. OMEPRAZOL                          /00661201/ [Concomitant]
     Active Substance: OMEPRAZOLE
     Indication: PRODUCT USED FOR UNKNOWN INDICATION
     Dosage: 1DD1
     Route: 048
  9. OMEPRAZOL CAPSULE MGA 20MG [Concomitant]
     Indication: PRODUCT USED FOR UNKNOWN INDICATION
     Dosage: 1DD1
     Route: 048
  10. LOSARTAN/HYDROCHLOORTHIAZIDE TAB OMHULD 100/25MG [Concomitant]
     Indication: PRODUCT USED FOR UNKNOWN INDICATION
     Dosage: 1DD1
     Route: 048
  11. OXIS TURBUHALER INHALPDR 12MCG/DO 60DO [Concomitant]
     Indication: PRODUCT USED FOR UNKNOWN INDICATION
     Dosage: 2-4DD1
     Route: 055
  12. THEOLAIR RETARD TABLET MGA 250MG [Concomitant]
     Indication: PRODUCT USED FOR UNKNOWN INDICATION
     Dosage: 3DD1
     Route: 048
  13. PREDNISOLON TABLET  5MG [Concomitant]
     Active Substance: PREDNISOLONE
     Indication: PRODUCT USED FOR UNKNOWN INDICATION
     Dosage: 3DD5MG
     Route: 048
  14. KENACORT [Suspect]
     Active Substance: TRIAMCINOLONE
     Indication: RHEUMATOID ARTHRITIS
     Dosage: 1 DF, Q6WK
     Route: 014
     Dates: start: 20120110
  15. RITUXIMAB [Suspect]
     Active Substance: RITUXIMAB
     Indication: RHEUMATOID ARTHRITIS
     Dosage: UNK UNK, QWK
     Route: 042
     Dates: start: 20120110
  16. OXIS [Concomitant]
     Active Substance: FORMOTEROL FUMARATE
     Indication: PRODUCT USED FOR UNKNOWN INDICATION
     Dosage: 2-4DD1
     Route: 055

REACTIONS (7)
  - Intracardiac thrombus [Not Recovered/Not Resolved]
  - Psychomotor hyperactivity [Unknown]
  - Cardiac arrest [Fatal]
  - Product use issue [Unknown]
  - Intestinal perforation [Not Recovered/Not Resolved]
  - Aggression [Unknown]
  - Abnormal faeces [Fatal]

NARRATIVE: CASE EVENT DATE: 20130120
